FAERS Safety Report 6589841-2 (Version None)
Quarter: 2010Q1

REPORT INFORMATION
  Report Type: 
  Country: None (occurrence: None)
  Receive Date: 20100219
  Receipt Date: 20100209
  Transmission Date: 20100710
  Serious: Yes (Other)
  Sender: FDA-Public Use
  Company Number: US-JNJFOC-20100112134

PATIENT
  Age: 55 Year
  Sex: Female
  Weight: 88.45 kg

DRUGS (1)
  1. ST. JOSEPH ENTERIC COATED [Suspect]
     Indication: CARDIOVASCULAR EVENT PROPHYLAXIS
     Route: 048

REACTIONS (7)
  - DIARRHOEA [None]
  - DIZZINESS [None]
  - DYSPNOEA [None]
  - MUSCULOSKELETAL PAIN [None]
  - NAUSEA [None]
  - PRODUCT QUALITY ISSUE [None]
  - WHEEZING [None]
